FAERS Safety Report 5742601-4 (Version None)
Quarter: 2008Q2

REPORT INFORMATION
  Report Type: 
  Country: None (occurrence: None)
  Receive Date: 20080519
  Receipt Date: 20080508
  Transmission Date: 20081010
  Serious: Yes (Other)
  Sender: FDA-Public Use
  Company Number: US-AMGEN-US274889

PATIENT
  Sex: Male
  Weight: 131.7 kg

DRUGS (1)
  1. ENBREL [Suspect]
     Indication: PSORIASIS
     Route: 058
     Dates: start: 20070414, end: 20080415

REACTIONS (1)
  - DIABETIC NEUROPATHY [None]
